FAERS Safety Report 8922948 (Version 3)
Quarter: 2013Q1

REPORT INFORMATION
  Report Type: Spontaneous
  Country: US (occurrence: US)
  Receive Date: 20121125
  Receipt Date: 20130110
  Transmission Date: 20140127
  Serious: Yes (Other)
  Sender: FDA-Public Use
  Company Number: US-MERCK-1211USA008737

PATIENT
  Sex: Female

DRUGS (3)
  1. PEGINTRON [Suspect]
     Indication: HEPATITIS C
     Dosage: REDIPEN
     Dates: start: 20121116
  2. RIBAVIRIN [Suspect]
     Indication: HEPATITIS C
     Dosage: UNK
     Dates: start: 20121117
  3. VICTRELIS [Suspect]
     Indication: HEPATITIS C
     Dosage: UNK
     Dates: start: 20121215

REACTIONS (17)
  - Parosmia [Unknown]
  - Diarrhoea [Unknown]
  - Musculoskeletal pain [Unknown]
  - Rash [Unknown]
  - Chills [Unknown]
  - Night sweats [Unknown]
  - Nausea [Unknown]
  - Decreased appetite [Unknown]
  - Ageusia [Unknown]
  - Pain [Unknown]
  - Pyrexia [Unknown]
  - Fatigue [Unknown]
  - Malaise [Unknown]
  - Vomiting [Unknown]
  - Influenza like illness [Unknown]
  - Fatigue [Unknown]
  - Dry skin [Unknown]
